FAERS Safety Report 24805274 (Version 1)
Quarter: 2025Q1

REPORT INFORMATION
  Report Type: Spontaneous
  Country: CN (occurrence: CN)
  Receive Date: 20250103
  Receipt Date: 20250103
  Transmission Date: 20250408
  Serious: Yes (Life-Threatening, Hospitalization, Other)
  Sender: ROCHE
  Company Number: CN-ROCHE-10000166189

PATIENT
  Age: 10 Year
  Sex: Male
  Weight: 50 kg

DRUGS (1)
  1. BALOXAVIR MARBOXIL [Suspect]
     Active Substance: BALOXAVIR MARBOXIL
     Indication: Influenza
     Route: 065

REACTIONS (4)
  - Influenza [Unknown]
  - Pneumonia [Unknown]
  - Extremity necrosis [Unknown]
  - Myocarditis [Unknown]
